FAERS Safety Report 25473641 (Version 1)
Quarter: 2025Q2

REPORT INFORMATION
  Report Type: Spontaneous
  Country: US (occurrence: US)
  Receive Date: 20250624
  Receipt Date: 20250624
  Transmission Date: 20250716
  Serious: No
  Sender: PFIZER
  Company Number: US-PFIZER INC-PV202500074680

PATIENT
  Age: 80 Year
  Sex: Female

DRUGS (2)
  1. PROTONIX [Suspect]
     Active Substance: PANTOPRAZOLE SODIUM
  2. PRIMIDONE [Concomitant]
     Active Substance: PRIMIDONE

REACTIONS (6)
  - Hyperchlorhydria [Unknown]
  - Heart rate irregular [Unknown]
  - Dizziness [Unknown]
  - Hypoaesthesia [Unknown]
  - Myalgia [Unknown]
  - Peripheral swelling [Unknown]
